FAERS Safety Report 20217580 (Version 1)
Quarter: 2021Q4

REPORT INFORMATION
  Report Type: Spontaneous
  Country: SE (occurrence: SE)
  Receive Date: 20211222
  Receipt Date: 20211222
  Transmission Date: 20220303
  Serious: Yes (Other)
  Sender: FDA-Public Use
  Company Number: None

PATIENT
  Age: 75 Year
  Sex: Female

DRUGS (7)
  1. METFORMIN [Suspect]
     Active Substance: METFORMIN HYDROCHLORIDE
     Indication: Type 2 diabetes mellitus
     Dosage: METFORMIN ACTAVIS 500 MG FILM-COATED TABLET
     Dates: start: 20170601, end: 202111
  2. ACETYLCYSTEINE [Concomitant]
     Active Substance: ACETYLCYSTEINE
     Dates: start: 20170601
  3. DICLOFENAC [Concomitant]
     Active Substance: DICLOFENAC
     Dates: start: 20170601
  4. VAGIFEM [Concomitant]
     Active Substance: ESTRADIOL
     Dosage: 20 MCG; VAGIFEM 10 MICROGRAMS VAGINAL TABLET
     Dates: start: 20170601
  5. ALLOPURINOL [Concomitant]
     Active Substance: ALLOPURINOL
     Dosage: 100 MG; ALLOPURINOL NORDIC DRUGS 100 MG TABLET
     Dates: start: 20170601
  6. BISOPROLOL [Concomitant]
     Active Substance: BISOPROLOL
     Dosage: 1.25 MG
     Dates: start: 20210609
  7. OMEPRAZOLE [Concomitant]
     Active Substance: OMEPRAZOLE
     Dates: start: 20170601

REACTIONS (1)
  - Extrasystoles [Unknown]

NARRATIVE: CASE EVENT DATE: 20211101
